FAERS Safety Report 15999209 (Version 3)
Quarter: 2019Q3

REPORT INFORMATION
  Report Type: Report from Study
  Country: CA (occurrence: CA)
  Receive Date: 20190225
  Receipt Date: 20190715
  Transmission Date: 20191004
  Serious: Yes (Other)
  Sender: FDA-Public Use
  Company Number: CA-PFIZER INC-2019079153

PATIENT

DRUGS (4)
  1. DACARBAZINE. [Suspect]
     Active Substance: DACARBAZINE
     Indication: HODGKIN^S DISEASE
     Dosage: 375 MG/M2, ON DAYS 1 AND 15 OF 28 DAYS CYCLE, AS PART OF A +AVD REGIMEN. SIX CYCLES WERE PLANNED
     Route: 042
  2. VINBLASTINE [Suspect]
     Active Substance: VINBLASTINE
     Indication: HODGKIN^S DISEASE
     Dosage: 6 MG/M2, ON DAYS 1 AND 15 OF 28 DAYS CYCLE, AS PART OF A +AVD REGIMEN. SIX CYCLES WERE PLANNED
     Route: 042
  3. BRENTUXIMAB VEDOTIN RECOMBINANT [Suspect]
     Active Substance: BRENTUXIMAB VEDOTIN
     Indication: HODGKIN^S DISEASE
     Dosage: 1.2 MG/KG, ON DAYS 1 AND 15 OF 28 DAYS CYCLE, AS PART OF A +AVD REGIMEN. SIX CYCLES WERE PLANNED
     Route: 042
  4. DOXORUBICIN HCL [Suspect]
     Active Substance: DOXORUBICIN HYDROCHLORIDE
     Indication: HODGKIN^S DISEASE
     Dosage: 25 MG/M2, ON DAYS 1 AND 15 OF 28 DAYS CYCLE, AS PART OF A +AVD REGIMEN. SIX CYCLES WERE PLANNED
     Route: 042

REACTIONS (1)
  - Neuropathy peripheral [Unknown]
